FAERS Safety Report 6690071-4 (Version None)
Quarter: 2010Q2

REPORT INFORMATION
  Report Type: 
  Country: None (occurrence: None)
  Receive Date: 20100421
  Receipt Date: 20100408
  Transmission Date: 20101027
  Serious: Yes (Hospitalization)
  Sender: FDA-Public Use
  Company Number: ES-ELI_LILLY_AND_COMPANY-ES201004002275

PATIENT
  Sex: Female
  Weight: 69 kg

DRUGS (9)
  1. FORTEO [Suspect]
     Indication: OSTEOPOROSIS
     Dosage: 20 UG, 48 HOURLY
     Route: 058
     Dates: start: 20090301
  2. ATACAND [Concomitant]
     Indication: HYPERTENSION
     Dosage: UNK, DAILY (1/D)
     Route: 048
  3. SIMVASTATIN [Concomitant]
     Indication: DYSLIPIDAEMIA
     Dosage: 40 MG, DAILY (1/D)
     Route: 048
  4. LEVOTHYROXINE SODIUM [Concomitant]
     Indication: HYPOTHYROIDISM
     Dosage: 100 MG, DAILY (1/D)
     Route: 048
  5. FLATORIL [Concomitant]
     Indication: FLATULENCE
     Dosage: UNK, DAILY (1/D)
     Route: 048
  6. SERTRALINE HCL [Concomitant]
     Indication: DEPRESSION
     Dosage: 50 MG, DAILY (1/D)
     Route: 048
  7. LEXATIN [Concomitant]
     Indication: ANXIETY
     Dosage: 1 D/F, 2/D
     Route: 048
  8. METAMIZOL [Concomitant]
     Indication: PAIN
     Dosage: UNK, AS NEEDED
     Route: 065
  9. ZALDIAR [Concomitant]
     Indication: PAIN
     Dosage: UNK, DAILY (1/D)
     Route: 048

REACTIONS (3)
  - HYPERCALCAEMIA [None]
  - PNEUMONIA [None]
  - URINARY TRACT INFECTION [None]
